FAERS Safety Report 9994037 (Version 2)
Quarter: 2014Q1

REPORT INFORMATION
  Report Type: Spontaneous
  Country: US (occurrence: US)
  Receive Date: 20140310
  Receipt Date: 20140310
  Transmission Date: 20141002
  Serious: No
  Sender: FDA-Public Use
  Company Number: US-AMGEN-USASP2013074179

PATIENT
  Age: 84 Year
  Sex: Female

DRUGS (2)
  1. SENSIPAR [Suspect]
     Indication: HYPERCALCAEMIA
     Dosage: 30 MG, QD
     Route: 065
     Dates: start: 2013
  2. SENSIPAR [Suspect]
     Indication: HYPERPARATHYROIDISM PRIMARY

REACTIONS (2)
  - Blood parathyroid hormone increased [Unknown]
  - Calcinosis [Unknown]
